FAERS Safety Report 9899354 (Version 3)
Quarter: 2014Q1

REPORT INFORMATION
  Report Type: Spontaneous
  Country: BR (occurrence: BR)
  Receive Date: 20140214
  Receipt Date: 20140219
  Transmission Date: 20141002
  Serious: Yes (Hospitalization, Other)
  Sender: FDA-Public Use
  Company Number: BR-ABBVIE-14P-020-1196773-00

PATIENT
  Age: 70 Year
  Sex: Female

DRUGS (3)
  1. DEPAKOTE ER [Suspect]
     Indication: BIPOLAR DISORDER
     Route: 048
  2. DEPAKOTE ER [Suspect]
  3. DEPAKOTE ER [Suspect]
     Dosage: TREATED FOR ALMOST A YEAR

REACTIONS (3)
  - Hypertensive crisis [Unknown]
  - Hypertensive crisis [Recovering/Resolving]
  - Increased appetite [Unknown]
